FAERS Safety Report 5934579-5 (Version None)
Quarter: 2008Q4

REPORT INFORMATION
  Report Type: 
  Country: None (occurrence: None)
  Receive Date: 20081029
  Receipt Date: 20081021
  Transmission Date: 20090506
  Serious: Yes (Other)
  Sender: FDA-Public Use
  Company Number: JP-PFIZER INC-2008081686

PATIENT
  Age: 40 Year
  Sex: Male

DRUGS (1)
  1. SOMAVERT [Suspect]
     Indication: ACROMEGALY
     Route: 058
     Dates: start: 20070125

REACTIONS (2)
  - OPTIC NERVE DISORDER [None]
  - VISUAL ACUITY REDUCED [None]
